FAERS Safety Report 14733030 (Version 1)
Quarter: 2018Q2

REPORT INFORMATION
  Report Type: Spontaneous
  Country: IN (occurrence: IN)
  Receive Date: 20180409
  Receipt Date: 20180409
  Transmission Date: 20180711
  Serious: Yes (Other)
  Sender: FDA-Public Use
  Company Number: IN-ACCORD-065349

PATIENT

DRUGS (2)
  1. SERTRALINE [Suspect]
     Active Substance: SERTRALINE HYDROCHLORIDE
     Indication: PERINATAL DEPRESSION
     Dosage: INITIALLY 50 MG IN MORNING THEN HIKED TO 75 MG/DAY (25 MG IN MORNING AND 50 MG IN NIGHT)
     Route: 063
  2. OLANZAPINE. [Concomitant]
     Active Substance: OLANZAPINE
     Indication: SLEEP DISORDER
     Dosage: 1.25 MG IN THE NIGHT
     Route: 063

REACTIONS (2)
  - Diarrhoea [Recovered/Resolved]
  - Exposure via breast milk [Unknown]
